FAERS Safety Report 4627800-7 (Version None)
Quarter: 2005Q2

REPORT INFORMATION
  Report Type: 
  Country: None (occurrence: None)
  Receive Date: 20050401
  Receipt Date: 20050321
  Transmission Date: 20051028
  Serious: Yes (Disabling, Other)
  Sender: FDA-Public Use
  Company Number: 2005029333

PATIENT
  Age: 18 Year
  Sex: Female
  Weight: 60 kg

DRUGS (1)
  1. GENOTROPIN [Suspect]
     Indication: TURNER'S SYNDROME
     Dosage: 12 MG (DAILY), SUBCUTANEOUS
     Route: 058
     Dates: start: 19990101, end: 20040101

REACTIONS (8)
  - CORNEAL BLEEDING [None]
  - EYE HAEMORRHAGE [None]
  - EYE INFECTION STAPHYLOCOCCAL [None]
  - EYE INFLAMMATION [None]
  - EYELID DISORDER [None]
  - OCULAR HYPERAEMIA [None]
  - PUNCTATE KERATITIS [None]
  - VISUAL ACUITY REDUCED [None]
